FAERS Safety Report 7778141-0 (Version None)
Quarter: 2011Q3

REPORT INFORMATION
  Report Type: 
  Country: None (occurrence: None)
  Receive Date: 20110926
  Receipt Date: 20101129
  Transmission Date: 20111222
  Serious: No
  Sender: FDA-Public Use
  Company Number: US-MUTUAL PHARMACEUTICAL COMPANY, INC.-2010P1002911

PATIENT
  Sex: Male
  Weight: 83.92 kg

DRUGS (10)
  1. METFORMIN HCL [Concomitant]
  2. ALLOPURINOL [Concomitant]
  3. BACTRIM DS [Suspect]
     Indication: ORCHITIS
     Route: 048
     Dates: start: 20101117, end: 20101124
  4. AMIODARONE HCL [Concomitant]
  5. LIPITOR [Concomitant]
  6. ASPIRIN [Concomitant]
  7. FUROSEMIDE [Concomitant]
  8. COUMADIN [Concomitant]
  9. FLOMAX [Concomitant]
  10. SYNTHROID [Concomitant]

REACTIONS (3)
  - RASH GENERALISED [None]
  - NEUTROPHIL COUNT INCREASED [None]
  - URTICARIA [None]
